FAERS Safety Report 8455128-6 (Version None)
Quarter: 2012Q2

REPORT INFORMATION
  Report Type: 
  Country: None (occurrence: None)
  Receive Date: 20120621
  Receipt Date: 20120613
  Transmission Date: 20120825
  Serious: Yes (Disabling)
  Sender: FDA-Public Use
  Company Number: US-US-EMD SERONO, INC.-7078912

PATIENT
  Sex: Female

DRUGS (1)
  1. REBIF [Suspect]
     Indication: MULTIPLE SCLEROSIS
     Dates: start: 20080615, end: 20111201

REACTIONS (4)
  - BLINDNESS [None]
  - ARTHRALGIA [None]
  - WEIGHT INCREASED [None]
  - DIPLOPIA [None]
